FAERS Safety Report 10279164 (Version 2)
Quarter: 2014Q3

REPORT INFORMATION
  Report Type: Spontaneous
  Country: GB (occurrence: GB)
  Receive Date: 20140707
  Receipt Date: 20140805
  Transmission Date: 20150326
  Serious: Yes (Hospitalization, Other)
  Sender: FDA-Public Use
  Company Number: GB-DRREDDYS-GER/UKI/14/0041539

PATIENT
  Age: 22 Year
  Sex: Female

DRUGS (6)
  1. SEROXAT [Concomitant]
     Active Substance: PAROXETINE HYDROCHLORIDE
     Indication: PRODUCT USED FOR UNKNOWN INDICATION
  2. SOFRADEX [Concomitant]
     Active Substance: DEXAMETHASONE\FRAMYCETIN SULFATE\GRAMICIDIN
     Indication: OTITIS EXTERNA
  3. FOLIC ACID. [Concomitant]
     Active Substance: FOLIC ACID
     Indication: PRODUCT USED FOR UNKNOWN INDICATION
  4. LAMOTRIGINE. [Suspect]
     Active Substance: LAMOTRIGINE
     Indication: EPILEPSY
     Route: 048
     Dates: start: 20130801, end: 20130808
  5. AMLODIPINE [Concomitant]
     Active Substance: AMLODIPINE BESYLATE
     Indication: HYPERTENSION
  6. AMLODIPINE [Concomitant]
     Active Substance: AMLODIPINE BESYLATE

REACTIONS (12)
  - Migraine [Recovered/Resolved]
  - Muscle spasms [Recovered/Resolved]
  - Blood pressure abnormal [Recovered/Resolved]
  - Oedema peripheral [Unknown]
  - Loss of employment [Recovered/Resolved]
  - Peripheral swelling [Recovered/Resolved]
  - Vasculitic rash [Unknown]
  - Malaise [Recovered/Resolved]
  - Rash generalised [Recovered/Resolved]
  - Headache [Unknown]
  - Hypersensitivity [Recovered/Resolved]
  - Depression [Recovered/Resolved]

NARRATIVE: CASE EVENT DATE: 20130801
